FAERS Safety Report 11108787 (Version 1)
Quarter: 2015Q2

REPORT INFORMATION
  Report Type: Spontaneous
  Country: US (occurrence: None)
  Receive Date: 20150511
  Receipt Date: 20150511
  Transmission Date: 20150821
  Serious: Yes (Other)
  Sender: FDA-Public Use
  Company Number: None

PATIENT
  Age: 66 Year
  Sex: Male
  Weight: 105.69 kg

DRUGS (3)
  1. BLOOD PRESSURE MEDICINE [Concomitant]
     Active Substance: UNSPECIFIED INGREDIENT
  2. CLONIDINE. [Suspect]
     Active Substance: CLONIDINE
  3. HEPATITIS MEDICINE [Concomitant]

REACTIONS (4)
  - Syncope [None]
  - Cold sweat [None]
  - Unresponsive to stimuli [None]
  - Dizziness [None]

NARRATIVE: CASE EVENT DATE: 20150509
